FAERS Safety Report 20796570 (Version 1)
Quarter: 2022Q2

REPORT INFORMATION
  Report Type: Report from Study
  Country: US (occurrence: US)
  Receive Date: 20220506
  Receipt Date: 20220506
  Transmission Date: 20220720
  Serious: Yes (Other)
  Sender: FDA-Public Use
  Company Number: US-MYLANLABS-2022M1033256

PATIENT
  Age: 14 Month
  Sex: Male

DRUGS (24)
  1. LIDOCAINE [Suspect]
     Active Substance: LIDOCAINE
     Indication: Long QT syndrome
     Dosage: UNK (DOSE: 30 MICROG/KG/MINUTE, INTRAVENOUS INFUSION)
     Route: 042
  2. LIDOCAINE [Suspect]
     Active Substance: LIDOCAINE
     Indication: Ventricular fibrillation
     Dosage: THERAPY WAS RE-INITIATED
     Route: 042
  3. LIDOCAINE [Suspect]
     Active Substance: LIDOCAINE
     Indication: Ventricular tachycardia
  4. LIDOCAINE [Suspect]
     Active Substance: LIDOCAINE
     Indication: Torsade de pointes
  5. FLECAINIDE [Concomitant]
     Active Substance: FLECAINIDE
     Indication: Long QT syndrome
     Dosage: UNK (DOSE: 3 MG/KG/D)
     Route: 065
  6. FLECAINIDE [Concomitant]
     Active Substance: FLECAINIDE
     Indication: Ventricular fibrillation
  7. FLECAINIDE [Concomitant]
     Active Substance: FLECAINIDE
     Indication: Ventricular tachycardia
  8. FLECAINIDE [Concomitant]
     Active Substance: FLECAINIDE
     Indication: Torsade de pointes
  9. MEXILETINE [Concomitant]
     Active Substance: MEXILETINE
     Indication: Long QT syndrome
     Dosage: UNK (DOSE: 21 MG/KG/D)
     Route: 065
  10. MEXILETINE [Concomitant]
     Active Substance: MEXILETINE
     Indication: Ventricular fibrillation
     Dosage: 7 MILLIGRAM/KILOGRAM, Q8H
     Route: 065
  11. MEXILETINE [Concomitant]
     Active Substance: MEXILETINE
     Indication: Ventricular tachycardia
  12. MEXILETINE [Concomitant]
     Active Substance: MEXILETINE
     Indication: Torsade de pointes
  13. PROPRANOLOL [Concomitant]
     Active Substance: PROPRANOLOL HYDROCHLORIDE
     Indication: Long QT syndrome
     Dosage: UNK
     Route: 065
  14. PROPRANOLOL [Concomitant]
     Active Substance: PROPRANOLOL HYDROCHLORIDE
     Indication: Ventricular fibrillation
  15. PROPRANOLOL [Concomitant]
     Active Substance: PROPRANOLOL HYDROCHLORIDE
     Indication: Ventricular tachycardia
  16. PROPRANOLOL [Concomitant]
     Active Substance: PROPRANOLOL HYDROCHLORIDE
     Indication: Torsade de pointes
  17. NADOLOL [Concomitant]
     Active Substance: NADOLOL
     Indication: Long QT syndrome
     Dosage: DOSE: 20MG IN THE MORNING AND 10 MG AT NIGHT
     Route: 048
  18. NADOLOL [Concomitant]
     Active Substance: NADOLOL
     Indication: Ventricular fibrillation
  19. NADOLOL [Concomitant]
     Active Substance: NADOLOL
     Indication: Ventricular tachycardia
  20. NADOLOL [Concomitant]
     Active Substance: NADOLOL
     Indication: Torsade de pointes
  21. DILTIAZEM [Concomitant]
     Active Substance: DILTIAZEM
     Indication: Long QT syndrome
     Dosage: UNK
     Route: 065
  22. DILTIAZEM [Concomitant]
     Active Substance: DILTIAZEM
     Indication: Ventricular fibrillation
  23. DILTIAZEM [Concomitant]
     Active Substance: DILTIAZEM
     Indication: Ventricular tachycardia
  24. DILTIAZEM [Concomitant]
     Active Substance: DILTIAZEM
     Indication: Torsade de pointes

REACTIONS (3)
  - Epilepsy [Recovered/Resolved]
  - Partial seizures [Recovered/Resolved]
  - Off label use [Recovered/Resolved]
